FAERS Safety Report 7120003-6 (Version None)
Quarter: 2010Q4

REPORT INFORMATION
  Report Type: 
  Country: None (occurrence: None)
  Receive Date: 20101123
  Receipt Date: 20101117
  Transmission Date: 20110411
  Serious: Yes (Hospitalization)
  Sender: FDA-Public Use
  Company Number: GB-PFIZER INC-2010151590

PATIENT
  Age: 75 Year
  Sex: Female
  Weight: 89.5 kg

DRUGS (11)
  1. SOMATROPIN [Suspect]
     Indication: HYPOPITUITARISM
     Dosage: 0.2 MG, 1X/DAY
     Dates: start: 20090325
  2. SPIRONOLACTONE [Concomitant]
     Dosage: 25 MG, DALLY
     Dates: start: 20050824
  3. METFORMIN [Concomitant]
     Indication: DIABETES MELLITUS
     Dosage: 500 MG, DAILY
     Dates: start: 20050330
  4. LOSARTAN [Concomitant]
     Indication: HYPERTENSION
     Dosage: 50 MG, DAILY
     Dates: start: 20050330
  5. DIGOXIN [Concomitant]
     Dosage: 125 UG, DAILY
     Dates: start: 20050330
  6. ACETYLSALICYLIC ACID [Concomitant]
     Indication: CORONARY ARTERY DISEASE
     Dosage: 75 MG, DAILY
     Dates: start: 20050330
  7. AMLODIPINE [Concomitant]
     Indication: HYPOTENSION
     Dosage: 5 MG, DAILY
     Dates: start: 20050330
  8. DIHYDROCODEINE [Concomitant]
     Dosage: 30 MG, AS NEEDED
     Dates: start: 19980810
  9. THYROXIN [Concomitant]
     Indication: BLOOD THYROID STIMULATING HORMONE DECREASED
     Dosage: 75 UG, DAILY
     Dates: start: 19970210
  10. THYROXIN [Concomitant]
     Indication: PRIMARY HYPOTHYROIDISM
  11. TIMOPTOL [Concomitant]
     Indication: GLAUCOMA
     Dosage: 1 DF, UNK
     Dates: start: 19981118

REACTIONS (1)
  - PELVIC MASS [None]
